FAERS Safety Report 19633750 (Version 1)
Quarter: 2021Q3

REPORT INFORMATION
  Report Type: Report from Study
  Country: US (occurrence: US)
  Receive Date: 20210729
  Receipt Date: 20210729
  Transmission Date: 20211014
  Serious: Yes (Other)
  Sender: FDA-Public Use
  Company Number: US-BAYER-2021-168676

PATIENT
  Age: 57 Year
  Sex: Male

DRUGS (2)
  1. XOFIGO [Suspect]
     Active Substance: RADIUM RA-223 DICHLORIDE
     Indication: HORMONE-REFRACTORY PROSTATE CANCER
     Dosage: 142.90 ?CI, Q4WK
     Route: 042
     Dates: start: 20210317, end: 20210317
  2. XOFIGO [Suspect]
     Active Substance: RADIUM RA-223 DICHLORIDE
     Indication: HORMONE-REFRACTORY PROSTATE CANCER
     Dosage: UNK
     Dates: start: 20210609, end: 20210609

REACTIONS (4)
  - Thrombocytopenia [Unknown]
  - Abdominal pain [Recovering/Resolving]
  - Faeces discoloured [Recovering/Resolving]
  - Gastrointestinal ulcer haemorrhage [Recovering/Resolving]
